FAERS Safety Report 17547138 (Version 3)
Quarter: 2020Q2

REPORT INFORMATION
  Report Type: Report from Study
  Country: US (occurrence: US)
  Receive Date: 20200316
  Receipt Date: 20200401
  Transmission Date: 20200713
  Serious: Yes (Hospitalization)
  Sender: FDA-Public Use
  Company Number: US-ACTELION-A-NJ2020-202990

PATIENT
  Age: 29 Year
  Sex: Female
  Weight: 74.38 kg

DRUGS (8)
  1. VELETRI [Suspect]
     Active Substance: EPOPROSTENOL
     Dosage: 4 NG/KG, PER MIN
     Route: 042
     Dates: start: 202003
  2. VELETRI [Suspect]
     Active Substance: EPOPROSTENOL
     Dosage: 5.7 NG/KG, PER MIN
     Route: 042
     Dates: start: 202003
  3. UPTRAVI [Suspect]
     Active Substance: SELEXIPAG
     Indication: PULMONARY ARTERIAL HYPERTENSION
     Dosage: 1600 MCG, BID
     Route: 048
     Dates: end: 20200310
  4. VELETRI [Suspect]
     Active Substance: EPOPROSTENOL
     Dosage: 2 NG/KG, PER MIN
     Route: 042
  5. VELETRI [Suspect]
     Active Substance: EPOPROSTENOL
     Indication: PULMONARY ARTERIAL HYPERTENSION
     Dosage: 6 NG/KG, PER MIN
     Route: 042
     Dates: start: 20200323
  6. OPSUMIT [Concomitant]
     Active Substance: MACITENTAN
  7. ADEMPAS [Concomitant]
     Active Substance: RIOCIGUAT
  8. VELETRI [Suspect]
     Active Substance: EPOPROSTENOL
     Dosage: 5 NG/KG, PER MIN
     Route: 042

REACTIONS (7)
  - Chest pain [Unknown]
  - Rash [Recovering/Resolving]
  - Pleuritic pain [Unknown]
  - Diarrhoea [Unknown]
  - Nausea [Recovered/Resolved]
  - Headache [Unknown]
  - Vomiting [Recovered/Resolved]

NARRATIVE: CASE EVENT DATE: 20200323
